FAERS Safety Report 6122494-6 (Version None)
Quarter: 2009Q1

REPORT INFORMATION
  Report Type: 
  Country: None (occurrence: None)
  Receive Date: 20090318
  Receipt Date: 20081216
  Transmission Date: 20090719
  Serious: No
  Sender: FDA-Public Use
  Company Number: US-ASTRAZENECA-2008UW28234

PATIENT
  Age: 33 Year
  Sex: Female
  Weight: 113.4 kg

DRUGS (4)
  1. SYMBICORT [Suspect]
     Indication: ASTHMA
     Dosage: 80/4.5 UG, 1 INHALATION, BID
     Route: 055
     Dates: start: 20081001, end: 20081209
  2. DEPO-PROVERA [Concomitant]
  3. ALBUTEROL [Concomitant]
  4. MULTI-VITAMIN [Concomitant]

REACTIONS (4)
  - ALOPECIA [None]
  - ANXIETY [None]
  - BLEPHAROSPASM [None]
  - NERVOUSNESS [None]
